FAERS Safety Report 13300787 (Version 1)
Quarter: 2017Q1

REPORT INFORMATION
  Report Type: Report from Study
  Country: JP (occurrence: JP)
  Receive Date: 20170307
  Receipt Date: 20170307
  Transmission Date: 20170428
  Serious: Yes (Other)
  Sender: FDA-Public Use
  Company Number: JP-ACCORD-048705

PATIENT
  Age: 48 Year
  Sex: Female

DRUGS (2)
  1. TACROLIMUS. [Suspect]
     Active Substance: TACROLIMUS
     Indication: PROPHYLAXIS AGAINST GRAFT VERSUS HOST DISEASE
  2. METHOTREXATE. [Suspect]
     Active Substance: METHOTREXATE
     Indication: PROPHYLAXIS AGAINST GRAFT VERSUS HOST DISEASE
     Dosage: ADMINISTERED AT A DOSE OF 15 OR 10 MG/M^2 DAY 1 AND 10 OR 7 MG/M^2 DAY 3 AND 6 AFTER TRANSPLANTATION

REACTIONS (1)
  - Encephalitis [Recovering/Resolving]
